FAERS Safety Report 4598401-4 (Version None)
Quarter: 2005Q1

REPORT INFORMATION
  Report Type: 
  Country: None (occurrence: None)
  Receive Date: 20050304
  Receipt Date: 20050221
  Transmission Date: 20050727
  Serious: Yes (Other)
  Sender: FDA-Public Use
  Company Number: GB-JNJFOC-20050205818

PATIENT
  Age: 45 Year
  Sex: Male
  Weight: 88.9 kg

DRUGS (3)
  1. RISPERDAL CONSTA [Suspect]
     Indication: PSYCHOTIC DISORDER
     Route: 030
     Dates: start: 20041217
  2. DIAZEPAM [Concomitant]
     Indication: ANXIETY
     Route: 049
  3. QUETIAPINE FUMARATE [Concomitant]
     Indication: PSYCHOTIC DISORDER
     Route: 049

REACTIONS (3)
  - INJECTION SITE INFECTION [None]
  - INJECTION SITE SWELLING [None]
  - INJECTION SITE ULCER [None]
